FAERS Safety Report 9043586 (Version 1)
Quarter: 2013Q1

REPORT INFORMATION
  Report Type: Spontaneous
  Country: US (occurrence: US)
  Receive Date: 20130129
  Receipt Date: 20130129
  Transmission Date: 20140127
  Serious: No
  Sender: FDA-Public Use
  Company Number: US-ABBOTT-12P-163-0914885-00

PATIENT
  Age: 58 Year
  Sex: Female
  Weight: 68.1 kg

DRUGS (7)
  1. HUMIRA 40 MG/0.8 ML PEN [Suspect]
     Indication: RHEUMATOID ARTHRITIS
     Dates: end: 20120213
  2. METHOTREXATE [Concomitant]
     Indication: RHEUMATOID ARTHRITIS
  3. PRILOSEC [Concomitant]
     Indication: GASTROOESOPHAGEAL REFLUX DISEASE
  4. FOLIC ACID [Concomitant]
     Indication: PROPHYLAXIS
  5. RESTASIS [Concomitant]
     Indication: DRY EYE
  6. ALLEGRA [Concomitant]
     Indication: SEASONAL ALLERGY
  7. ORACEA [Concomitant]
     Indication: ACNE

REACTIONS (2)
  - Herpes zoster [Recovering/Resolving]
  - Pain [Recovering/Resolving]
